FAERS Safety Report 9424478 (Version 1)
Quarter: 2013Q3

REPORT INFORMATION
  Report Type: Spontaneous
  Country: US (occurrence: None)
  Receive Date: 20130725
  Receipt Date: 20130725
  Transmission Date: 20140515
  Serious: No
  Sender: FDA-Public Use
  Company Number: AUR-APL-2013-06149

PATIENT
  Age: 45 Year
  Sex: Female
  Weight: 59 kg

DRUGS (3)
  1. METFORMIN [Suspect]
     Indication: POLYCYSTIC OVARIES
     Dosage: 500MG (250MG 2 IN 1 D)
  2. CYTOMEL [Suspect]
     Indication: THYROID FUNCTION TEST ABNORMAL
     Dosage: 5MCG (2.5MCG, 2 IN 1 D)
     Dates: end: 2003
  3. SYNTHROID (LEVOTHYROXINE SODIUM) [Suspect]
     Indication: HYPOTHYROIDISM
     Dosage: 90MCG (90MCG, 1 IN 1 D)
     Dates: end: 2013

REACTIONS (6)
  - Gastrointestinal disorder [None]
  - Coeliac disease [None]
  - Food allergy [None]
  - Malabsorption [None]
  - Weight decreased [None]
  - Malaise [None]
